FAERS Safety Report 5753727-3 (Version None)
Quarter: 2008Q2

REPORT INFORMATION
  Report Type: 
  Country: None (occurrence: None)
  Receive Date: 20080530
  Receipt Date: 20080527
  Transmission Date: 20081010
  Serious: Yes (Other)
  Sender: FDA-Public Use
  Company Number: US-ASTRAZENECA-2008UW10706

PATIENT
  Sex: Male

DRUGS (3)
  1. NEXIUM [Suspect]
     Indication: GASTRINOMA
     Route: 048
     Dates: start: 20060501
  2. OCTREOTIDE ACETATE [Concomitant]
     Indication: GASTRIN SECRETION DISORDER
  3. OCTREOTIDE ACETATE [Concomitant]
     Indication: GASTRINOMA

REACTIONS (4)
  - ABDOMINAL DISTENSION [None]
  - ABDOMINAL HERNIA [None]
  - ERUCTATION [None]
  - FLATULENCE [None]
